FAERS Safety Report 9009510 (Version 11)
Quarter: 2014Q3

REPORT INFORMATION
  Report Type: Spontaneous
  Country: US (occurrence: US)
  Receive Date: 20130110
  Receipt Date: 20140919
  Transmission Date: 20150326
  Serious: Yes (Hospitalization, Other)
  Sender: FDA-Public Use
  Company Number: US-GLAXOSMITHKLINE-A1007732A

PATIENT
  Age: 53 Year
  Sex: Female

DRUGS (4)
  1. REVATIO [Concomitant]
     Active Substance: SILDENAFIL CITRATE
  2. FLOLAN [Suspect]
     Active Substance: EPOPROSTENOL SODIUM
     Indication: PULMONARY ARTERIAL HYPERTENSION
     Dosage: 24NGKM CONTINUOUS
     Route: 042
     Dates: start: 20100421
  3. LETAIRIS [Concomitant]
     Active Substance: AMBRISENTAN
  4. COUMADIN [Concomitant]
     Active Substance: WARFARIN SODIUM

REACTIONS (11)
  - Ligament sprain [Unknown]
  - Device leakage [Recovered/Resolved]
  - Incorrect dose administered [Recovered/Resolved]
  - Cystitis [Unknown]
  - Medical device complication [Recovered/Resolved]
  - Tooth extraction [Recovered/Resolved]
  - Medical device complication [Recovered/Resolved]
  - Malaise [Recovered/Resolved]
  - Central venous catheterisation [Recovered/Resolved]
  - Infusion site erythema [Recovered/Resolved]
  - Arthropod bite [Recovered/Resolved]

NARRATIVE: CASE EVENT DATE: 201105
